FAERS Safety Report 20330929 (Version 2)
Quarter: 2022Q1

REPORT INFORMATION
  Report Type: Spontaneous
  Country: US (occurrence: US)
  Receive Date: 20220113
  Receipt Date: 20220202
  Transmission Date: 20220423
  Serious: Yes (Death, Other)
  Sender: FDA-Public Use
  Company Number: US-GLENMARK PHARMACEUTICALS-2022GMK069718

PATIENT
  Age: 50 Year
  Sex: Female

DRUGS (5)
  1. FULVESTRANT [Suspect]
     Active Substance: FULVESTRANT
     Indication: Breast cancer stage IV
     Dosage: UNK
     Route: 065
     Dates: start: 200804
  2. IMIQUIMOD [Suspect]
     Active Substance: IMIQUIMOD
     Indication: Breast cancer stage IV
     Dosage: UNK UNK, BID FOR 5 DAYS A WEEK
     Route: 061
  3. LETROZOLE [Suspect]
     Active Substance: LETROZOLE
     Indication: Breast cancer stage IV
     Dosage: UNK
     Route: 065
  4. DOCETAXEL [Concomitant]
     Active Substance: DOCETAXEL
     Indication: Breast cancer stage IV
     Dosage: UNK, FOR SEVEN CYCLES AND FOLLOWED BY CAPECITABINE FOR FIVE CYCLES
     Route: 065
  5. CAPECITABINE [Concomitant]
     Active Substance: CAPECITABINE
     Indication: Breast cancer stage IV
     Dosage: UNK; DOCETAXEL FOR SEVEN CYCLES AND FOLLOWED BY CAPECITABINE FOR FIVE CYCLES
     Route: 065

REACTIONS (1)
  - Metastatic neoplasm [Fatal]
